FAERS Safety Report 20460674 (Version 2)
Quarter: 2022Q1

REPORT INFORMATION
  Report Type: Spontaneous
  Country: SK (occurrence: SK)
  Receive Date: 20220211
  Receipt Date: 20220315
  Transmission Date: 20220423
  Serious: Yes (Hospitalization)
  Sender: FDA-Public Use
  Company Number: SK-VERTEX PHARMACEUTICALS-2022-002566

PATIENT
  Sex: Female

DRUGS (15)
  1. ELEXACAFTOR\IVACAFTOR\TEZACAFTOR [Suspect]
     Active Substance: ELEXACAFTOR\IVACAFTOR\TEZACAFTOR
     Indication: Cystic fibrosis
     Dosage: 2 TABS (75 MG IVACAFTOR/ 50 MG TEZACAFTOR/ 100 MG ELEXACAFTOR) AM
     Route: 048
     Dates: start: 20210519, end: 202111
  2. ELEXACAFTOR\IVACAFTOR\TEZACAFTOR [Suspect]
     Active Substance: ELEXACAFTOR\IVACAFTOR\TEZACAFTOR
     Dosage: 2 TABS TWICE A WEEK
     Route: 048
     Dates: start: 202111, end: 2021
  3. ELEXACAFTOR\IVACAFTOR\TEZACAFTOR [Suspect]
     Active Substance: ELEXACAFTOR\IVACAFTOR\TEZACAFTOR
     Dosage: 2 TABS IN AM
     Route: 048
  4. KALYDECO [Suspect]
     Active Substance: IVACAFTOR
     Indication: Cystic fibrosis
     Dosage: 1 TAB; PM
     Route: 048
     Dates: start: 20210519
  5. INSULIN NOS [Concomitant]
     Active Substance: INSULIN NOS
     Indication: Cystic fibrosis related diabetes
  6. PULMOZYME [Concomitant]
     Active Substance: DORNASE ALFA
  7. COLISTIMETHATE SODIUM [Concomitant]
     Active Substance: COLISTIMETHATE SODIUM
  8. AZITHROMYCIN [Concomitant]
     Active Substance: AZITHROMYCIN
     Dosage: 3 TIMES A WEEK
  9. PANCRELIPASE [Concomitant]
     Active Substance: PANCRELIPASE
     Dosage: 4 X 3CAPS, 25000 UNITS
  10. BECLOMETHASONE DIPROPIONATE\FORMOTEROL FUMARATE\GLYCOPYRROLATE [Concomitant]
     Active Substance: BECLOMETHASONE DIPROPIONATE\FORMOTEROL FUMARATE\GLYCOPYRROLATE
     Dosage: 2 BREATH MORNING AND EVENING
  11. ACETYLCYSTEINE [Concomitant]
     Active Substance: ACETYLCYSTEINE
  12. SODIUM CHLORIDE [Concomitant]
     Active Substance: SODIUM CHLORIDE
  13. HUMALOG [Concomitant]
     Active Substance: INSULIN LISPRO
     Dosage: 4-2-4 UNIT S S.C
  14. ATROVENT [Concomitant]
     Active Substance: IPRATROPIUM BROMIDE
     Dosage: AS NEEDED
  15. CEFOPERAZONE [Concomitant]
     Active Substance: CEFOPERAZONE
     Dosage: 2 G EVERY 8 HOURS
     Route: 042

REACTIONS (2)
  - Infective pulmonary exacerbation of cystic fibrosis [Recovered/Resolved]
  - SARS-CoV-2 test positive [Recovered/Resolved]

NARRATIVE: CASE EVENT DATE: 20211102
